FAERS Safety Report 22068184 (Version 2)
Quarter: 2024Q2

REPORT INFORMATION
  Report Type: Report from Study
  Country: BR (occurrence: BR)
  Receive Date: 20230307
  Receipt Date: 20240416
  Transmission Date: 20240716
  Serious: Yes (Other)
  Sender: FDA-Public Use
  Company Number: BR-002147023-NVSC2023BR050086

PATIENT
  Age: 64 Year
  Sex: Female

DRUGS (5)
  1. COSENTYX [Suspect]
     Active Substance: SECUKINUMAB
     Indication: Psoriasis
     Dosage: UNK
     Route: 065
  2. COSENTYX [Suspect]
     Active Substance: SECUKINUMAB
     Dosage: UNK
     Route: 065
     Dates: start: 20230202
  3. COSENTYX [Suspect]
     Active Substance: SECUKINUMAB
     Dosage: UNK
     Route: 065
     Dates: start: 20230216
  4. COSENTYX [Suspect]
     Active Substance: SECUKINUMAB
     Dosage: UNK
     Route: 065
  5. COSENTYX [Suspect]
     Active Substance: SECUKINUMAB
     Dosage: UNK
     Route: 065

REACTIONS (15)
  - Superficial vein thrombosis [Unknown]
  - Venous occlusion [Unknown]
  - Wound [Unknown]
  - Psoriasis [Unknown]
  - Pruritus [Recovered/Resolved]
  - Skin exfoliation [Recovered/Resolved]
  - Sensitive skin [Unknown]
  - Skin lesion [Unknown]
  - Pruritus [Unknown]
  - Diarrhoea [Unknown]
  - Wound [Recovered/Resolved]
  - Immune system disorder [Unknown]
  - Emotional disorder [Unknown]
  - Pruritus [Recovered/Resolved]
  - Self esteem decreased [Unknown]

NARRATIVE: CASE EVENT DATE: 20230101
